FAERS Safety Report 7039812-7 (Version None)
Quarter: 2010Q4

REPORT INFORMATION
  Report Type: 
  Country: None (occurrence: None)
  Receive Date: 20101012
  Receipt Date: 20101005
  Transmission Date: 20110411
  Serious: Yes (Other)
  Sender: FDA-Public Use
  Company Number: CA-MERCK-1010USA01008

PATIENT
  Age: 52 Year
  Sex: Male

DRUGS (2)
  1. ISENTRESS [Suspect]
     Route: 048
  2. FUZEON [Suspect]
     Route: 065

REACTIONS (2)
  - B-CELL LYMPHOMA [None]
  - INJECTION SITE REACTION [None]
